FAERS Safety Report 14251103 (Version 1)
Quarter: 2017Q4

REPORT INFORMATION
  Report Type: Spontaneous
  Country: US (occurrence: US)
  Receive Date: 20171205
  Receipt Date: 20171205
  Transmission Date: 20180321
  Serious: No
  Sender: FDA-Public Use
  Company Number: US-009507513-1711USA005048

PATIENT
  Age: 67 Year
  Sex: Female

DRUGS (3)
  1. INVANZ [Suspect]
     Active Substance: ERTAPENEM SODIUM
     Indication: BACTERIAL INFECTION
     Dosage: 1 G DAILY
     Route: 042
     Dates: start: 20160824, end: 20161005
  2. VANCOMYCIN [Concomitant]
     Active Substance: VANCOMYCIN
     Indication: BACTERIAL INFECTION
     Dosage: UNK
     Dates: start: 20160817, end: 20160824
  3. AMPICILLIN AND SULBACTAM [Concomitant]
     Active Substance: AMPICILLIN SODIUM\SULBACTAM SODIUM
     Indication: BACTERIAL INFECTION
     Dosage: 3 G EVERY 6 HOURS
     Route: 042
     Dates: start: 20160822, end: 20160824

REACTIONS (1)
  - Off label use [Unknown]

NARRATIVE: CASE EVENT DATE: 20160824
